FAERS Safety Report 6244019-7 (Version None)
Quarter: 2009Q2

REPORT INFORMATION
  Report Type: 
  Country: None (occurrence: None)
  Receive Date: 20090623
  Receipt Date: 20090615
  Transmission Date: 20091009
  Serious: Yes (Disabling)
  Sender: FDA-Public Use
  Company Number: 8019942

PATIENT
  Age: 11 Year
  Weight: 35.5 kg

DRUGS (4)
  1. KEPPRA [Suspect]
     Indication: CONVULSION
     Dosage: 375 MG 2/D PO
     Route: 048
     Dates: start: 20060712
  2. KEPPRA [Suspect]
     Indication: CONVULSION
     Dosage: 500 MG 2/D PO
     Route: 048
     Dates: end: 20060812
  3. CHLORAL HYDRATE [Concomitant]
  4. LAMICTAL [Concomitant]

REACTIONS (12)
  - AGITATION [None]
  - ANGER [None]
  - ANOREXIA [None]
  - COMPLEX PARTIAL SEIZURES [None]
  - CONDITION AGGRAVATED [None]
  - DRUG WITHDRAWAL CONVULSIONS [None]
  - FEAR [None]
  - MALAISE [None]
  - MOOD SWINGS [None]
  - PANIC ATTACK [None]
  - PSYCHOMOTOR HYPERACTIVITY [None]
  - YELLOW SKIN [None]
